FAERS Safety Report 7438550-6 (Version None)
Quarter: 2011Q2

REPORT INFORMATION
  Report Type: 
  Country: None (occurrence: None)
  Receive Date: 20110426
  Receipt Date: 20110415
  Transmission Date: 20111010
  Serious: Yes (Hospitalization, Other)
  Sender: FDA-Public Use
  Company Number: US-MYLANLABS-2011S1007878

PATIENT
  Age: 64 Year
  Sex: Female

DRUGS (22)
  1. AZATHIOPRINE TABLETS, USP [Suspect]
     Indication: LUNG TRANSPLANT
     Dates: start: 20110215, end: 20110302
  2. AZATHIOPRINE TABLETS, USP [Suspect]
     Dates: start: 20110315, end: 20110315
  3. HYDROCHLOROTHIAZIDE [Concomitant]
  4. PLAVIX [Concomitant]
  5. GABAPENTIN [Concomitant]
  6. LEVOXYL [Concomitant]
  7. ENALAPRIL MALEATE [Suspect]
     Indication: BLOOD PRESSURE
  8. SALSALATE [Concomitant]
  9. PRAVASTATIN [Concomitant]
  10. DILTIAZEM [Concomitant]
     Indication: ANGINA PECTORIS
  11. TIZANIDINE [Concomitant]
  12. ASPIRIN [Concomitant]
  13. VITAMIN C + E [Concomitant]
  14. KLOR-CON [Concomitant]
  15. AZATHIOPRINE TABLETS, USP [Suspect]
     Dates: start: 20110302, end: 20110304
  16. XANAX [Concomitant]
  17. M.V.I. [Concomitant]
  18. ACETYLCYSTEINE [Concomitant]
     Dosage: 3 MLS BID
  19. PRISTIQ [Concomitant]
  20. PREDNISONE [Concomitant]
  21. VITAMIN B-12 [Concomitant]
  22. FISH OIL [Concomitant]

REACTIONS (12)
  - NAUSEA [None]
  - MUSCULAR WEAKNESS [None]
  - PYREXIA [None]
  - LOSS OF CONSCIOUSNESS [None]
  - FALL [None]
  - POTENTIATING DRUG INTERACTION [None]
  - URINARY INCONTINENCE [None]
  - MALAISE [None]
  - CONTUSION [None]
  - URINARY TRACT INFECTION [None]
  - FACIAL BONES FRACTURE [None]
  - VOMITING [None]
